FAERS Safety Report 25941940 (Version 1)
Quarter: 2025Q4

REPORT INFORMATION
  Report Type: Spontaneous
  Country: US (occurrence: US)
  Receive Date: 20251020
  Receipt Date: 20251020
  Transmission Date: 20260117
  Serious: Yes (Other)
  Sender: FRESENIUS KABI
  Company Number: US-FreseniusKabi-FK202514095

PATIENT
  Age: 71 Year
  Sex: Female

DRUGS (1)
  1. MITOMYCIN [Suspect]
     Active Substance: MITOMYCIN
     Indication: Trabeculectomy
     Dosage: DOSE- 40 MCG?SUBCONJUNCTIVAL INJECTION

REACTIONS (2)
  - Ischaemia [Recovering/Resolving]
  - Glaucoma drainage device exposure [Recovering/Resolving]
